FAERS Safety Report 22049747 (Version 1)
Quarter: 2023Q1

REPORT INFORMATION
  Report Type: Spontaneous
  Country: CN (occurrence: CN)
  Receive Date: 20230301
  Receipt Date: 20230301
  Transmission Date: 20230417
  Serious: Yes (Other)
  Sender: FDA-Public Use
  Company Number: None

PATIENT
  Age: 68 Year
  Sex: Female
  Weight: 63 kg

DRUGS (4)
  1. MANNITOL [Suspect]
     Active Substance: MANNITOL
     Indication: Cerebral infarction
     Dosage: 100 MILLILITERS (ML), ONCE DAILY (DOSAGE FORM: INJECTION)
     Route: 041
     Dates: start: 20230207, end: 20230211
  2. MANNITOL [Suspect]
     Active Substance: MANNITOL
     Indication: Hernia
  3. MANNITOL [Suspect]
     Active Substance: MANNITOL
     Indication: Diuretic therapy
  4. MANNITOL [Suspect]
     Active Substance: MANNITOL
     Indication: Reduction of increased intracranial pressure

REACTIONS (2)
  - Renal impairment [Recovering/Resolving]
  - Urine output decreased [Recovering/Resolving]

NARRATIVE: CASE EVENT DATE: 20230211
